FAERS Safety Report 10522052 (Version 2)
Quarter: 2015Q2

REPORT INFORMATION
  Report Type: Spontaneous
  Country: US (occurrence: None)
  Receive Date: 20141014
  Receipt Date: 20150520
  Transmission Date: 20150821
  Serious: Yes (Disabling)
  Sender: FDA-Public Use
  Company Number: US-H14001-14-00998

PATIENT
  Age: 15 Year
  Sex: Female

DRUGS (25)
  1. GABAPENTIN. [Concomitant]
     Active Substance: GABAPENTIN
  2. TOPIRAMATE. [Concomitant]
     Active Substance: TOPIRAMATE
  3. CEPHALEXIN. [Concomitant]
     Active Substance: CEPHALEXIN
  4. ZOLPIDEM [Suspect]
     Active Substance: ZOLPIDEM\ZOLPIDEM TARTRATE
     Indication: PRODUCT USED FOR UNKNOWN INDICATION
     Dosage: 12.5 MG (12.5 MG, 1 IN 1 D), UNKNOWN
  5. PREGABALIN. [Concomitant]
     Active Substance: PREGABALIN
  6. FENTANYL. [Concomitant]
     Active Substance: FENTANYL
  7. PREGABALIN. [Concomitant]
     Active Substance: PREGABALIN
  8. TEMAZEPAM. [Concomitant]
     Active Substance: TEMAZEPAM
  9. TRAZODONE [Concomitant]
     Active Substance: TRAZODONE HYDROCHLORIDE
  10. VITAMINS (VITAMINS /90003601/) (UNKNOWN) [Concomitant]
  11. MEDROXYPROGESTERONE [Concomitant]
     Active Substance: MEDROXYPROGESTERONE
  12. ONDANSETRON [Concomitant]
     Active Substance: ONDANSETRON
  13. HYDROCODONE [Concomitant]
     Active Substance: HYDROCODONE
  14. OXYCODONE [Concomitant]
     Active Substance: OXYCODONE
  15. DULOXETINE [Concomitant]
     Active Substance: DULOXETINE
  16. TAPENTADOL [Concomitant]
     Active Substance: TAPENTADOL
  17. BACLOFEN. [Concomitant]
     Active Substance: BACLOFEN
  18. OXYCONTIN (OXYCONTIN HYDROCHLORIDE) [Concomitant]
  19. PANTOPRAZOLE [Concomitant]
     Active Substance: PANTOPRAZOLE SODIUM
  20. HYDROMORPHONE (HYDROMORPHONE) (UNKNOWN) (HYDROMORPHONE) [Suspect]
     Active Substance: HYDROMORPHONE
     Indication: PAIN
  21. METHADONE [Concomitant]
     Active Substance: METHADONE HYDROCHLORIDE
  22. TRAMADOL [Concomitant]
     Active Substance: TRAMADOL
  23. TAPENTADOL [Concomitant]
     Active Substance: TAPENTADOL
  24. CYANCOBALAMIN [Concomitant]
  25. MELATONIN [Concomitant]
     Active Substance: MELATONIN

REACTIONS (15)
  - Depression [None]
  - Weight increased [None]
  - Pain [None]
  - Bedridden [None]
  - Activities of daily living impaired [None]
  - Drug ineffective [None]
  - Drug effect decreased [None]
  - Fatigue [None]
  - Dysuria [None]
  - Abnormal behaviour [None]
  - Social problem [None]
  - Faecal incontinence [None]
  - Somnolence [None]
  - Anxiety [None]
  - Suicidal ideation [None]
